FAERS Safety Report 7584477-9 (Version None)
Quarter: 2011Q2

REPORT INFORMATION
  Report Type: 
  Country: None (occurrence: None)
  Receive Date: 20110630
  Receipt Date: 20110622
  Transmission Date: 20111010
  Serious: Yes (Hospitalization, Other)
  Sender: FDA-Public Use
  Company Number: JP-UCBSA-006831

PATIENT
  Sex: Female

DRUGS (19)
  1. POLAPREZINC [Concomitant]
  2. CERTOLIZUMAB PEGOL [Suspect]
     Route: 058
     Dates: start: 20110202, end: 20110301
  3. PIRMENOL HYDROCHLORIDE [Concomitant]
  4. CELECOXIB [Concomitant]
     Dates: start: 20090417, end: 20100202
  5. TIZANIDINE HYDROCHLORIDE [Concomitant]
  6. DICLOFENAC SODIUM [Concomitant]
     Dates: start: 20090203
  7. CERTOLIZUMAB PEGOL [Suspect]
     Route: 058
     Dates: start: 20100202, end: 20110118
  8. ALENDRONATE SODIUM [Concomitant]
  9. POLAPREZINC [Concomitant]
  10. PREDNISOLONE [Concomitant]
  11. LOXOPROFEN SODIUM [Concomitant]
     Dates: start: 20100708
  12. ALFACALCIDOL [Concomitant]
  13. LOXOPROFEN SODIUM [Concomitant]
     Dates: start: 20100203
  14. CERTOLIZUMAB PEGOL [Suspect]
     Route: 058
  15. PREDNISOLONE [Concomitant]
     Dates: start: 20090503
  16. KETOPROFEN [Concomitant]
     Dosage: ADEQUATE DOSE
     Dates: start: 20090529
  17. ELCATONIN [Concomitant]
     Dates: start: 20100202, end: 20100317
  18. CERTOLIZUMAB PEGOL [Suspect]
     Indication: RHEUMATOID ARTHRITIS
     Route: 058
  19. TRIAZOLAM [Concomitant]
     Indication: INSOMNIA
     Dosage: 0.25 MG IN CASE OF INSOMNIA

REACTIONS (3)
  - SPINAL COMPRESSION FRACTURE [None]
  - LYMPHOMA [None]
  - RHEUMATOID ARTHRITIS [None]
